FAERS Safety Report 12081033 (Version 1)
Quarter: 2016Q1

REPORT INFORMATION
  Report Type: Spontaneous
  Country: CN (occurrence: CN)
  Receive Date: 20160216
  Receipt Date: 20160216
  Transmission Date: 20160526
  Serious: Yes (Other)
  Sender: FDA-Public Use
  Company Number: CN-HQ SPECIALTY-CN-2016INT000056

PATIENT
  Age: 61 Year
  Sex: Female

DRUGS (5)
  1. MERCAPTOPURINE. [Suspect]
     Active Substance: MERCAPTOPURINE
     Indication: ACUTE MYELOID LEUKAEMIA
     Dosage: UNK
  2. ASPARAGINASE [Suspect]
     Active Substance: ASPARAGINASE
     Indication: ACUTE MYELOID LEUKAEMIA
     Dosage: UNK
  3. TENIPOSIDE. [Suspect]
     Active Substance: TENIPOSIDE
     Indication: ACUTE MYELOID LEUKAEMIA
     Dosage: UNK
  4. CYTARABINE. [Suspect]
     Active Substance: CYTARABINE
     Indication: ACUTE MYELOID LEUKAEMIA
     Dosage: UNK
  5. MITOXANTRONE [Suspect]
     Active Substance: MITOXANTRONE HYDROCHLORIDE
     Indication: ACUTE MYELOID LEUKAEMIA
     Dosage: UNK

REACTIONS (2)
  - Arthralgia [Unknown]
  - Osteonecrosis [Unknown]

NARRATIVE: CASE EVENT DATE: 201302
